FAERS Safety Report 4638768-1 (Version None)
Quarter: 2005Q2

REPORT INFORMATION
  Report Type: 
  Country: None (occurrence: None)
  Receive Date: 20050419
  Receipt Date: 20050407
  Transmission Date: 20051028
  Serious: Yes (Hospitalization)
  Sender: FDA-Public Use
  Company Number: FR-BRISTOL-MYERS SQUIBB COMPANY-12929519

PATIENT
  Age: 80 Year
  Sex: Female

DRUGS (5)
  1. FOZITEC TABS 10 MG [Suspect]
     Indication: HYPERTENSION
     Route: 048
     Dates: end: 20050308
  2. KALEORID [Suspect]
     Indication: HYPERTENSION
     Route: 048
     Dates: end: 20050308
  3. ALPRESS [Concomitant]
     Indication: HYPERTENSION
     Route: 048
  4. HYPERIUM [Concomitant]
     Indication: HYPERTENSION
     Route: 048
  5. ZANIDIP [Concomitant]
     Indication: HYPERTENSION
     Route: 048

REACTIONS (2)
  - ATRIOVENTRICULAR BLOCK COMPLETE [None]
  - HYPERKALAEMIA [None]
